FAERS Safety Report 9461747 (Version 1)
Quarter: 2013Q3

REPORT INFORMATION
  Report Type: Spontaneous
  Country: IL (occurrence: IL)
  Receive Date: 20130816
  Receipt Date: 20130816
  Transmission Date: 20140515
  Serious: Yes (Other)
  Sender: FDA-Public Use
  Company Number: IL-PERRIGO-13IL008005

PATIENT
  Age: 62 Year
  Sex: Male

DRUGS (4)
  1. TESTOSTERONE [Suspect]
     Indication: BLOOD TESTOSTERONE DECREASED
     Dosage: 25 MCG PRN
     Route: 061
     Dates: start: 201101, end: 201101
  2. TESTOSTERONE [Suspect]
     Dosage: 10 MCG TO 12.5 MCG, 2 TO 3 TIMES WEEKLY
     Route: 061
     Dates: start: 2011, end: 2013
  3. TESTOSTERONE [Suspect]
     Dosage: 10 MCG TO 12.5 MCG, 2 TO 3 TIMES WEEKLY
     Route: 061
     Dates: start: 2013
  4. ATACAND PLUS [Concomitant]
     Indication: HYPERTENSION
     Dosage: 16 MG/12.5 MG, QD
     Route: 048

REACTIONS (6)
  - Dyspnoea [Recovered/Resolved]
  - Palpitations [Recovered/Resolved]
  - Urinary retention [Recovered/Resolved]
  - Incorrect dose administered [Unknown]
  - Drug ineffective [Unknown]
  - Product quality issue [None]
